FAERS Safety Report 10473764 (Version 1)
Quarter: 2014Q3

REPORT INFORMATION
  Report Type: Spontaneous
  Country: SK (occurrence: SK)
  Receive Date: 20140924
  Receipt Date: 20140924
  Transmission Date: 20150326
  Serious: Yes (Hospitalization)
  Sender: FDA-Public Use
  Company Number: PHHY2014SK121270

PATIENT
  Age: 55 Year
  Sex: Male

DRUGS (2)
  1. IBUPROFEN. [Suspect]
     Active Substance: IBUPROFEN
     Dosage: 12 DF, UNK
  2. SODIUM CHLORITE [Suspect]
     Active Substance: SODIUM CHLORITE
     Dosage: 100 ML, UNK

REACTIONS (32)
  - Heart rate increased [Unknown]
  - Gastrointestinal disorder [Unknown]
  - Gastric ulcer [Recovering/Resolving]
  - Hyperkalaemia [Unknown]
  - Electrocardiogram T wave peaked [Unknown]
  - Disseminated intravascular coagulation [Unknown]
  - Hypotension [Unknown]
  - Bronchopneumonia [Unknown]
  - Depressed level of consciousness [Unknown]
  - Gastric mucosal lesion [Unknown]
  - Toxicity to various agents [Unknown]
  - Haemolytic anaemia [Unknown]
  - Vomiting [Unknown]
  - Slow response to stimuli [Unknown]
  - Blood pressure increased [Unknown]
  - Asphyxia [Unknown]
  - Faecal incontinence [Unknown]
  - Duodenal ulcer [Unknown]
  - Anuria [Unknown]
  - Blood lactic acid increased [Unknown]
  - Suicide attempt [Unknown]
  - Cyanosis [Unknown]
  - Oesophageal ulcer [Recovering/Resolving]
  - Sepsis [Unknown]
  - Fall [Unknown]
  - Body temperature decreased [Unknown]
  - Renal failure acute [Unknown]
  - Oedema mucosal [Unknown]
  - Metabolic acidosis [Unknown]
  - Methaemoglobinaemia [Unknown]
  - Platelet count decreased [Unknown]
  - Urinary incontinence [Unknown]
